FAERS Safety Report 6236838-8 (Version None)
Quarter: 2009Q2

REPORT INFORMATION
  Report Type: 
  Country: None (occurrence: None)
  Receive Date: 20090619
  Receipt Date: 20090303
  Transmission Date: 20091009
  Serious: No
  Sender: FDA-Public Use
  Company Number: US-BAYER-200910726BCC

PATIENT
  Age: 77 Year
  Sex: Female
  Weight: 59 kg

DRUGS (6)
  1. ALEVE (CAPLET) [Suspect]
     Indication: ARTHRALGIA
     Dosage: UNIT DOSE: 220 MG
     Dates: start: 20090101, end: 20090226
  2. ALEVE (CAPLET) [Suspect]
     Dosage: TOTAL DAILY DOSE: 220 MG  UNIT DOSE: 220 MG
     Dates: start: 20090226
  3. TRAMADOL HCL [Concomitant]
  4. LOTREL [Concomitant]
  5. LOVASTATIN [Concomitant]
  6. ALENDRONATE SODIUM [Concomitant]

REACTIONS (2)
  - CONSTIPATION [None]
  - CONTUSION [None]
